FAERS Safety Report 18588332 (Version 1)
Quarter: 2020Q4

REPORT INFORMATION
  Report Type: Spontaneous
  Country: US (occurrence: US)
  Receive Date: 20201207
  Receipt Date: 20201207
  Transmission Date: 20210114
  Serious: No
  Sender: FDA-Public Use
  Company Number: US-JUBILANT CADISTA PHARMACEUTICALS-2019JUB00431

PATIENT
  Age: 72 Year
  Sex: Male
  Weight: 61.22 kg

DRUGS (1)
  1. METHYLPREDNISOLONE. [Suspect]
     Active Substance: METHYLPREDNISOLONE
     Indication: SEBORRHOEIC KERATOSIS
     Dosage: UNK, AS DIRECTED; STARTED WITH LARGE DOSE AND THEN TAPERED DOWN
     Route: 048
     Dates: start: 201910, end: 20191021

REACTIONS (6)
  - Thirst [Not Recovered/Not Resolved]
  - Hyperhidrosis [Not Recovered/Not Resolved]
  - Night sweats [Not Recovered/Not Resolved]
  - Gout [Not Recovered/Not Resolved]
  - Feeling cold [Not Recovered/Not Resolved]
  - Presyncope [Unknown]

NARRATIVE: CASE EVENT DATE: 2019
